FAERS Safety Report 22349414 (Version 3)
Quarter: 2025Q2

REPORT INFORMATION
  Report Type: Report from Study
  Country: US (occurrence: US)
  Receive Date: 20230522
  Receipt Date: 20250509
  Transmission Date: 20250716
  Serious: Yes (Death)
  Sender: ROCHE
  Company Number: US-ROCHE-3353752

PATIENT
  Age: 79 Year
  Sex: Female
  Weight: 49 kg

DRUGS (2)
  1. XOLAIR [Suspect]
     Active Substance: OMALIZUMAB
     Indication: Asthma
     Dosage: INJECT 375 MG SUBCUTANEOUSLY EVERY 14 DAYS?ON 08-FEB-2022, SHE HAD HER MOST RECENT APPLICATION
     Route: 058
  2. XOLAIR [Suspect]
     Active Substance: OMALIZUMAB
     Dosage: INJECT 375 MG SUBCUTANEOUSLY EVERY 14 DAYS
     Route: 058

REACTIONS (2)
  - Death [Fatal]
  - Off label use [Unknown]

NARRATIVE: CASE EVENT DATE: 20230507
